FAERS Safety Report 5756010-5 (Version None)
Quarter: 2008Q2

REPORT INFORMATION
  Report Type: 
  Country: None (occurrence: None)
  Receive Date: 20080602
  Receipt Date: 20080505
  Transmission Date: 20081010
  Serious: No
  Sender: FDA-Public Use
  Company Number: US-ABBOTT-08P-163-0450534-00

PATIENT
  Sex: Male
  Weight: 81.72 kg

DRUGS (2)
  1. ZEMPLAR [Suspect]
     Indication: RENAL DISORDER
     Route: 048
     Dates: start: 20080409, end: 20080423
  2. DOXERCALCIFEROL [Concomitant]
     Indication: RENAL DISORDER
     Route: 048
     Dates: start: 20080425

REACTIONS (4)
  - CONSTIPATION [None]
  - DIARRHOEA [None]
  - DYSGEUSIA [None]
  - FATIGUE [None]
